FAERS Safety Report 4944971-3 (Version None)
Quarter: 2006Q1

REPORT INFORMATION
  Report Type: 
  Country: None (occurrence: None)
  Receive Date: 20060117
  Receipt Date: 20050520
  Transmission Date: 20060701
  Serious: Yes (Hospitalization)
  Sender: FDA-Public Use
  Company Number: A03200501515

PATIENT
  Age: 87 Year
  Sex: Male
  Weight: 77.1115 kg

DRUGS (6)
  1. PLAVIX [Suspect]
     Indication: MYOCARDIAL INFARCTION
     Dosage: ORAL
     Route: 048
     Dates: end: 20041101
  2. ASPIRIN [Suspect]
     Indication: PROPHYLAXIS
     Dosage: 81 MG QD - ORAL
     Route: 048
     Dates: end: 20041101
  3. LISINOPRIL [Concomitant]
  4. METOPROLOL SUCCINATE [Concomitant]
  5. GLIMEPIRIDE [Concomitant]
  6. SIMVASTATIN [Concomitant]

REACTIONS (1)
  - CONTUSION [None]
